FAERS Safety Report 8228854-1 (Version None)
Quarter: 2012Q1

REPORT INFORMATION
  Report Type: 
  Country: None (occurrence: None)
  Receive Date: 20120322
  Receipt Date: 20110502
  Transmission Date: 20120608
  Serious: No
  Sender: FDA-Public Use
  Company Number: US-MYLANLABS-2010S1015609

PATIENT
  Age: 81 Year
  Sex: Female

DRUGS (4)
  1. XALATAN [Concomitant]
     Route: 031
  2. TAMOXIFEN CITRATE [Suspect]
     Indication: BREAST CANCER
     Route: 048
     Dates: start: 20080805, end: 20100716
  3. FOSAMAX [Concomitant]
     Indication: OSTEOPOROSIS
     Dates: end: 20100801
  4. COMBIGAN [Concomitant]
     Route: 031

REACTIONS (4)
  - NEUROPATHY PERIPHERAL [None]
  - OEDEMA [None]
  - PARAESTHESIA [None]
  - PERONEAL NERVE PALSY [None]
